FAERS Safety Report 4656126-0 (Version None)
Quarter: 2005Q2

REPORT INFORMATION
  Report Type: 
  Country: None (occurrence: None)
  Receive Date: 20050505
  Receipt Date: 20050429
  Transmission Date: 20051028
  Serious: Yes (Hospitalization)
  Sender: FDA-Public Use
  Company Number: 200510313BFR

PATIENT
  Age: 88 Year
  Sex: Female

DRUGS (4)
  1. MOXIFLOXACIN HYDROCHLORIDE [Suspect]
     Indication: PNEUMONITIS
     Dosage: 400 MG, TOTAL DAILY, ORAL
     Route: 048
     Dates: start: 20050207, end: 20050211
  2. CIPROFLOXACIN HCL [Suspect]
     Indication: PNEUMONITIS
     Dosage: INTRAVENOUS
     Route: 042
     Dates: start: 20050204, end: 20050207
  3. AUGMENTIN [Suspect]
     Indication: PNEUMONITIS
     Dosage: 3 G, TOTAL DAILY, ORAL
     Route: 048
     Dates: start: 20050204
  4. ROCEPHIN [Suspect]
     Indication: PNEUMONITIS
     Dosage: INTRAVENOUS
     Route: 042
     Dates: start: 20050204, end: 20050207

REACTIONS (2)
  - CLOSTRIDIUM COLITIS [None]
  - PYREXIA [None]
